FAERS Safety Report 13141105 (Version 1)
Quarter: 2017Q1

REPORT INFORMATION
  Report Type: Report from Study
  Country: JP (occurrence: JP)
  Receive Date: 20170123
  Receipt Date: 20170123
  Transmission Date: 20170428
  Serious: Yes (Death, Life-Threatening)
  Sender: FDA-Public Use
  Company Number: JP-TEVA-673043ISR

PATIENT
  Age: 61 Year
  Sex: Female
  Weight: 58.5 kg

DRUGS (9)
  1. FAMOTIDINE (FAMOTIDINE) [Concomitant]
     Active Substance: FAMOTIDINE
     Dates: end: 20160620
  2. PREDNISOLONE. [Suspect]
     Active Substance: PREDNISOLONE
     Indication: RELAPSING-REMITTING MULTIPLE SCLEROSIS
     Dosage: 40 MILLIGRAM DAILY;
     Route: 065
  3. LANDSEN (CLONAZEPAM) [Concomitant]
     Dates: end: 20160620
  4. ZOLPIDEM TARTRATE (ZOLPIDEM TARTRATE) [Concomitant]
     Active Substance: ZOLPIDEM TARTRATE
     Dates: end: 20160620
  5. GLATIRAMER ACETATE (GLATIRAMER ACETATE) INJECTION [Suspect]
     Active Substance: GLATIRAMER ACETATE
     Indication: RELAPSING-REMITTING MULTIPLE SCLEROSIS
     Dosage: 20 MILLIGRAM/MILLILITERS DAILY;
     Route: 058
     Dates: start: 20160617, end: 20160619
  6. SOLU-MEDROL [Suspect]
     Active Substance: METHYLPREDNISOLONE SODIUM SUCCINATE
     Indication: MULTIPLE SCLEROSIS
     Dosage: 500 MILLIGRAM DAILY;
     Route: 042
     Dates: start: 20160502, end: 20160504
  7. DEXAMETHASONE. [Suspect]
     Active Substance: DEXAMETHASONE
     Indication: MULTIPLE SCLEROSIS
     Dosage: 12 MILLIGRAM DAILY;
     Route: 065
     Dates: start: 20160510
  8. SOLU-MEDROL [Suspect]
     Active Substance: METHYLPREDNISOLONE SODIUM SUCCINATE
     Dosage: 1000 MILLIGRAM DAILY;
     Route: 042
     Dates: start: 20160507, end: 20160508
  9. LYRICA [Concomitant]
     Active Substance: PREGABALIN
     Dates: end: 20160620

REACTIONS (6)
  - Pyrexia [Unknown]
  - Cerebral haemorrhage [Fatal]
  - Renal impairment [Unknown]
  - Cerebral infarction [Unknown]
  - Pneumonia [Unknown]
  - Disseminated intravascular coagulation [Unknown]

NARRATIVE: CASE EVENT DATE: 20160618
